FAERS Safety Report 5588522-1 (Version None)
Quarter: 2008Q1

REPORT INFORMATION
  Report Type: 
  Country: None (occurrence: None)
  Receive Date: 20080111
  Receipt Date: 20080110
  Transmission Date: 20080703
  Serious: Yes (Hospitalization)
  Sender: FDA-Public Use
  Company Number: CN-ASTRAZENECA-2008AP00263

PATIENT
  Age: 70 Year
  Sex: Male

DRUGS (3)
  1. OMEPRAZOLE [Suspect]
     Indication: DUODENAL ULCER
     Route: 048
  2. OMEPRAZOLE [Suspect]
     Indication: GASTRITIS EROSIVE
     Route: 048
  3. OMEPRAZOLE [Suspect]
     Route: 042

REACTIONS (1)
  - HENOCH-SCHONLEIN PURPURA [None]
